APPROVED DRUG PRODUCT: PIPERACILLIN AND TAZOBACTAM AND SODIUM CHLORIDE IN DUPLEX CONTAINER
Active Ingredient: PIPERACILLIN SODIUM; TAZOBACTAM SODIUM
Strength: EQ 3GM BASE/VIAL;EQ 375MG BASE/VIAL
Dosage Form/Route: POWDER;INTRAVENOUS
Application: N206056 | Product #002
Applicant: B BRAUN MEDICAL INC
Approved: Apr 3, 2025 | RLD: Yes | RS: Yes | Type: RX